FAERS Safety Report 5103212-7 (Version None)
Quarter: 2006Q3

REPORT INFORMATION
  Report Type: 
  Country: None (occurrence: None)
  Receive Date: 20060912
  Receipt Date: 20060912
  Transmission Date: 20061208
  Serious: Yes (Hospitalization)
  Sender: FDA-Public Use
  Company Number: None

PATIENT
  Age: 22 Year
  Sex: Female
  Weight: 81.6475 kg

DRUGS (1)
  1. BACTRIM [Suspect]
     Indication: URINARY TRACT INFECTION
     Dosage: 2 PILLS DAILY
     Dates: start: 20060614, end: 20060620

REACTIONS (2)
  - CONTRAINDICATION TO MEDICAL TREATMENT [None]
  - STEVENS-JOHNSON SYNDROME [None]
